FAERS Safety Report 5632353-0 (Version None)
Quarter: 2008Q1

REPORT INFORMATION
  Report Type: 
  Country: None (occurrence: None)
  Receive Date: 20080220
  Receipt Date: 20080208
  Transmission Date: 20080703
  Serious: Yes (Life-Threatening, Hospitalization)
  Sender: FDA-Public Use
  Company Number: DE-ELI_LILLY_AND_COMPANY-DE200802001930

PATIENT
  Age: 58 Year
  Sex: Male

DRUGS (1)
  1. FLUOXETINE HCL [Suspect]
     Dosage: 10 MG, UNKNOWN
     Route: 048
     Dates: start: 20070501, end: 20070506

REACTIONS (7)
  - AGITATION [None]
  - ANXIETY [None]
  - DELUSION [None]
  - HOMICIDE [None]
  - RESTLESSNESS [None]
  - SLEEP DISORDER [None]
  - SUICIDAL IDEATION [None]
